FAERS Safety Report 9587585 (Version 1)
Quarter: 2013Q4

REPORT INFORMATION
  Report Type: Spontaneous
  Country: US (occurrence: US)
  Receive Date: 20131003
  Receipt Date: 20131003
  Transmission Date: 20140711
  Serious: No
  Sender: FDA-Public Use
  Company Number: US-MYLANLABS-2013S1016342

PATIENT
  Age: 61 Year
  Sex: Female
  Weight: 93.9 kg

DRUGS (5)
  1. METOPROLOL SUCCINATE EXTENDED-RELEASE TABLETS USP [Suspect]
     Indication: BLOOD PRESSURE
     Route: 048
     Dates: start: 20130717
  2. MAGNESIUM [Concomitant]
     Dates: start: 2013
  3. BABY ASPIRIN [Concomitant]
     Route: 048
  4. TYLENOL PM [Concomitant]
  5. ATIVAN [Concomitant]
     Dates: start: 201203

REACTIONS (5)
  - Chest discomfort [Not Recovered/Not Resolved]
  - Chest pain [Not Recovered/Not Resolved]
  - Muscle spasms [Not Recovered/Not Resolved]
  - Tinnitus [Not Recovered/Not Resolved]
  - Nausea [Not Recovered/Not Resolved]
